FAERS Safety Report 7557828-9 (Version None)
Quarter: 2011Q2

REPORT INFORMATION
  Report Type: 
  Country: None (occurrence: None)
  Receive Date: 20110620
  Receipt Date: 20110614
  Transmission Date: 20111010
  Serious: Yes (Death, Hospitalization)
  Sender: FDA-Public Use
  Company Number: SV-PFIZER INC-2011041481

PATIENT
  Age: 50 Year
  Sex: Male

DRUGS (6)
  1. SUCRALFATE [Suspect]
     Dosage: UNK
  2. PANTOPRAZOLE [Suspect]
     Dosage: 40 MG, 1X/DAY
     Route: 048
  3. VITAMIN K TAB [Suspect]
     Dosage: UNK
     Route: 048
  4. PANTOPRAZOLE [Suspect]
     Dosage: UNK
     Route: 042
     Dates: start: 20100601
  5. VITAMINS NOS [Suspect]
  6. VITAMIN K TAB [Suspect]
     Dosage: UNK
     Route: 030

REACTIONS (2)
  - DEATH [None]
  - GASTROINTESTINAL HAEMORRHAGE [None]
